FAERS Safety Report 4687043-8 (Version None)
Quarter: 2005Q2

REPORT INFORMATION
  Report Type: 
  Country: None (occurrence: None)
  Receive Date: 20050608
  Receipt Date: 20050530
  Transmission Date: 20051028
  Serious: Yes (Death, Other)
  Sender: FDA-Public Use
  Company Number: 2005-04-2094

PATIENT
  Age: 64 Year
  Sex: Male

DRUGS (12)
  1. NASONEX [Suspect]
     Indication: RHINITIS ALLERGIC
     Dosage: BID NASAL SPRAY
     Route: 045
     Dates: start: 20011221
  2. AERIUS (DESLORATADINE) TABLETS [Suspect]
     Indication: RHINITIS ALLERGIC
     Dosage: 5 MG DAILY ORAL
     Route: 048
     Dates: start: 20031114
  3. LORAZEPAM [Concomitant]
  4. ENTROPHEN [Concomitant]
  5. VASOTEC [Concomitant]
  6. WELLBUTRIN [Concomitant]
  7. PREVACID [Concomitant]
  8. VITAMIN B-12 [Concomitant]
  9. TIOTROPIUM BROMIDE [Concomitant]
  10. NORVASC [Concomitant]
  11. EZETROL (EZETIMIBE) [Suspect]
     Dosage: 10 MG OD ORAL
     Route: 048
     Dates: start: 20040429
  12. CRESTOR [Suspect]

REACTIONS (3)
  - DIABETES MELLITUS [None]
  - MYALGIA [None]
  - MYOCARDIAL INFARCTION [None]
